FAERS Safety Report 8846232 (Version 2)
Quarter: 2012Q4

REPORT INFORMATION
  Report Type: 
  Country: JP (occurrence: JP)
  Receive Date: 20121017
  Receipt Date: 20121025
  Transmission Date: 20130627
  Serious: Yes (Hospitalization)
  Sender: FDA-Public Use
  Company Number: JP-ABBOTT-12P-087-0995771-00

PATIENT
  Age: 13 Year
  Sex: Female

DRUGS (2)
  1. CYCLOSPORIN A [Suspect]
     Indication: NEPHROTIC SYNDROME
     Dates: start: 199206, end: 19920721
  2. PREDNISOLONE [Suspect]
     Indication: NEPHROTIC SYNDROME
     Dates: start: 19920702

REACTIONS (1)
  - Leukoencephalopathy [Recovered/Resolved]
